FAERS Safety Report 23275481 (Version 3)
Quarter: 2024Q1

REPORT INFORMATION
  Report Type: Report from Study
  Country: FR (occurrence: FR)
  Receive Date: 20231208
  Receipt Date: 20240213
  Transmission Date: 20240409
  Serious: Yes (Other)
  Sender: FDA-Public Use
  Company Number: FR-ASTELLAS-2023US036686

PATIENT
  Age: 77 Year
  Sex: Male
  Weight: 58 kg

DRUGS (29)
  1. ENFORTUMAB VEDOTIN [Suspect]
     Active Substance: ENFORTUMAB VEDOTIN
     Indication: Transitional cell carcinoma
     Dosage: 69 MG, CYCLIC (C1J1)
     Route: 042
     Dates: start: 20220908, end: 20220908
  2. ENFORTUMAB VEDOTIN [Suspect]
     Active Substance: ENFORTUMAB VEDOTIN
     Indication: Metastatic carcinoma of the bladder
     Dosage: 69 MG, CYCLIC (C1J8)
     Route: 042
     Dates: start: 20220915, end: 20220915
  3. ENFORTUMAB VEDOTIN [Suspect]
     Active Substance: ENFORTUMAB VEDOTIN
     Dosage: 69 MG, CYCLIC (C1J15)
     Route: 042
     Dates: start: 20220922, end: 20220922
  4. ENFORTUMAB VEDOTIN [Suspect]
     Active Substance: ENFORTUMAB VEDOTIN
     Dosage: 69 MG, CYCLIC (C2J1)
     Route: 042
     Dates: start: 20221006, end: 20221006
  5. ENFORTUMAB VEDOTIN [Suspect]
     Active Substance: ENFORTUMAB VEDOTIN
     Dosage: 69 MG, CYCLIC (C2J8)
     Route: 042
     Dates: start: 20221013, end: 20221013
  6. ENFORTUMAB VEDOTIN [Suspect]
     Active Substance: ENFORTUMAB VEDOTIN
     Dosage: 69 MG, CYCLIC (C2J15)
     Route: 042
     Dates: start: 20221020, end: 20221020
  7. ENFORTUMAB VEDOTIN [Suspect]
     Active Substance: ENFORTUMAB VEDOTIN
     Dosage: 69 MG, CYCLIC (C3J1)
     Route: 042
     Dates: start: 20221103, end: 20221103
  8. ENFORTUMAB VEDOTIN [Suspect]
     Active Substance: ENFORTUMAB VEDOTIN
     Dosage: 70 MG, CYCLIC,  (C3J8)
     Route: 042
     Dates: start: 20221110, end: 20221110
  9. ENFORTUMAB VEDOTIN [Suspect]
     Active Substance: ENFORTUMAB VEDOTIN
     Dosage: 70 MG, CYCLIC,  (C3J15)
     Route: 042
     Dates: start: 20221117, end: 20221117
  10. ENFORTUMAB VEDOTIN [Suspect]
     Active Substance: ENFORTUMAB VEDOTIN
     Dosage: 75 MG, CYCLIC  (C4J1)
     Route: 042
     Dates: start: 20221201, end: 20221201
  11. ENFORTUMAB VEDOTIN [Suspect]
     Active Substance: ENFORTUMAB VEDOTIN
     Dosage: 75 MG, CYCLIC (C4J8)
     Route: 042
     Dates: start: 20221208, end: 20221208
  12. ENFORTUMAB VEDOTIN [Suspect]
     Active Substance: ENFORTUMAB VEDOTIN
     Dosage: 75 MG, CYCLIC (C4J15)
     Route: 042
     Dates: start: 20221215, end: 20221215
  13. ENFORTUMAB VEDOTIN [Suspect]
     Active Substance: ENFORTUMAB VEDOTIN
     Dosage: 75 MG, CYCLIC (C5J1)
     Route: 042
     Dates: start: 20221229, end: 20221229
  14. ENFORTUMAB VEDOTIN [Suspect]
     Active Substance: ENFORTUMAB VEDOTIN
     Dosage: 75 MG, CYCLIC (C5J8)
     Route: 042
     Dates: start: 20230105, end: 20230105
  15. ENFORTUMAB VEDOTIN [Suspect]
     Active Substance: ENFORTUMAB VEDOTIN
     Dosage: 75 MG, CYCLIC (C5J15)
     Route: 042
     Dates: start: 20230112, end: 20230112
  16. ENFORTUMAB VEDOTIN [Suspect]
     Active Substance: ENFORTUMAB VEDOTIN
     Dosage: 80 MG, CYCLIC (C6J1)
     Route: 042
     Dates: start: 20230126, end: 20230126
  17. ENFORTUMAB VEDOTIN [Suspect]
     Active Substance: ENFORTUMAB VEDOTIN
     Dosage: 80 MG, CYCLIC (C6J8)
     Route: 042
     Dates: start: 20230202, end: 20230202
  18. ENFORTUMAB VEDOTIN [Suspect]
     Active Substance: ENFORTUMAB VEDOTIN
     Dosage: 80 MG, CYCLIC (C6J15)
     Route: 042
     Dates: start: 20230209, end: 20230209
  19. ENFORTUMAB VEDOTIN [Suspect]
     Active Substance: ENFORTUMAB VEDOTIN
     Dosage: 80 MG, CYCLIC (C7J1)
     Route: 042
     Dates: start: 20230223, end: 20230223
  20. ENFORTUMAB VEDOTIN [Suspect]
     Active Substance: ENFORTUMAB VEDOTIN
     Dosage: 80 MG, CYCLIC (C7J8)
     Route: 042
     Dates: start: 20230302, end: 20230302
  21. ENFORTUMAB VEDOTIN [Suspect]
     Active Substance: ENFORTUMAB VEDOTIN
     Dosage: UNK UNK, UNKNOWN FREQ.(C7 J15)
     Route: 042
     Dates: start: 20230309, end: 20230309
  22. ENFORTUMAB VEDOTIN [Suspect]
     Active Substance: ENFORTUMAB VEDOTIN
     Dosage: 73 MG, CYCLIC (C8J1)
     Route: 042
     Dates: start: 20230406, end: 20230406
  23. ENFORTUMAB VEDOTIN [Suspect]
     Active Substance: ENFORTUMAB VEDOTIN
     Dosage: 73 MG, CYCLIC (C8J8)
     Route: 042
     Dates: start: 20230413, end: 20230413
  24. ENFORTUMAB VEDOTIN [Suspect]
     Active Substance: ENFORTUMAB VEDOTIN
     Dosage: 73 MG, CYCLIC (C8J15)
     Route: 042
     Dates: start: 20230420, end: 20230420
  25. ENFORTUMAB VEDOTIN [Suspect]
     Active Substance: ENFORTUMAB VEDOTIN
     Dosage: 73 MG, CYCLIC (C9J1)
     Route: 042
     Dates: start: 20230504, end: 20230504
  26. ENFORTUMAB VEDOTIN [Suspect]
     Active Substance: ENFORTUMAB VEDOTIN
     Dosage: 73 MG, CYCLIC (C9J8)
     Route: 042
     Dates: start: 20230511, end: 20230511
  27. ENFORTUMAB VEDOTIN [Suspect]
     Active Substance: ENFORTUMAB VEDOTIN
     Dosage: 73 MG, CYCLIC (C9J15)
     Route: 042
     Dates: start: 20230519, end: 20230519
  28. ENFORTUMAB VEDOTIN [Suspect]
     Active Substance: ENFORTUMAB VEDOTIN
     Dosage: 73 MG, CYCLIC (C10J1)
     Route: 042
     Dates: start: 20230601, end: 20230601
  29. ENFORTUMAB VEDOTIN [Suspect]
     Active Substance: ENFORTUMAB VEDOTIN
     Dosage: 73 MG, CYCLIC (C10J8)
     Route: 042
     Dates: start: 20230608, end: 20230608

REACTIONS (1)
  - Pemphigoid [Recovered/Resolved]

NARRATIVE: CASE EVENT DATE: 20230615
